FAERS Safety Report 5668581-8 (Version None)
Quarter: 2008Q1

REPORT INFORMATION
  Report Type: 
  Country: None (occurrence: None)
  Receive Date: 20080315
  Receipt Date: 20080228
  Transmission Date: 20080703
  Serious: No
  Sender: FDA-Public Use
  Company Number: US-ABBOTT-08P-163-0440355-00

PATIENT
  Sex: Female
  Weight: 68.554 kg

DRUGS (5)
  1. HUMIRA [Suspect]
     Indication: CROHN'S DISEASE
     Dosage: LOADING DOSE
     Route: 058
     Dates: start: 20080226, end: 20080226
  2. MESALAMINE [Concomitant]
     Indication: CROHN'S DISEASE
     Route: 048
     Dates: start: 19930101
  3. CYANOCOBALAMIN [Concomitant]
     Indication: DRUG USE FOR UNKNOWN INDICATION
     Route: 048
  4. ACETYLSALICYLIC ACID [Concomitant]
     Indication: THROMBOSIS
     Route: 048
  5. CHONDROITIN W/GLUCOSAMINE [Concomitant]
     Indication: ARTHRALGIA
     Route: 048

REACTIONS (3)
  - BACK PAIN [None]
  - FATIGUE [None]
  - HYPOTENSION [None]
